FAERS Safety Report 20555026 (Version 4)
Quarter: 2022Q2

REPORT INFORMATION
  Report Type: Report from Study
  Country: US (occurrence: US)
  Receive Date: 20220304
  Receipt Date: 20220411
  Transmission Date: 20220721
  Serious: Yes (Hospitalization, Other)
  Sender: FDA-Public Use
  Company Number: US-BRISTOL-MYERS SQUIBB COMPANY-BMS-2022-030322

PATIENT
  Age: 65 Year
  Sex: Male
  Weight: 105 kg

DRUGS (3)
  1. NIVOLUMAB [Suspect]
     Active Substance: NIVOLUMAB
     Indication: Bladder cancer
     Dosage: MOST RECENT DOSE RECEIVED ON 13-JAN-2022?DOSE DELAYED
     Route: 042
     Dates: start: 20211103, end: 20220113
  2. CISPLATIN [Suspect]
     Active Substance: CISPLATIN
     Indication: Bladder cancer
     Dosage: MOST RECENT DOSE RECEIVED ON 13-JAN-2022 AT 144 MG?DOSE DELAYED
     Route: 065
     Dates: start: 20211103, end: 20220113
  3. GEMCITABINE HYDROCHLORIDE [Suspect]
     Active Substance: GEMCITABINE HYDROCHLORIDE
     Indication: Bladder cancer
     Dosage: MOST RECENT DOSE RECEIVED ON 20-JAN-2022 AT 1627 MG?DOSE DELAYED
     Route: 065
     Dates: start: 20211103, end: 20220120

REACTIONS (2)
  - Urinary tract infection [Recovering/Resolving]
  - Embolism [Recovering/Resolving]

NARRATIVE: CASE EVENT DATE: 20220224
